FAERS Safety Report 11168159 (Version 2)
Quarter: 2015Q3

REPORT INFORMATION
  Report Type: Spontaneous
  Country: US (occurrence: US)
  Receive Date: 20150605
  Receipt Date: 20150821
  Transmission Date: 20151125
  Serious: Yes (Hospitalization)
  Sender: FDA-Public Use
  Company Number: US-BAYER-2015-302116

PATIENT
  Age: 33 Year
  Sex: Female
  Weight: 44.9 kg

DRUGS (8)
  1. CLONAZEPAM. [Concomitant]
     Active Substance: CLONAZEPAM
  2. NORCO [Concomitant]
     Active Substance: ACETAMINOPHEN\HYDROCODONE BITARTRATE
  3. MIRENA [Suspect]
     Active Substance: LEVONORGESTREL
     Indication: CONTRACEPTION
     Dosage: 20 MCG/24HR, CONT
     Route: 015
     Dates: start: 200909, end: 20130613
  4. OMEPRAZOL [Concomitant]
     Active Substance: OMEPRAZOLE
  5. TRIAMCINOLONE ACETONIDE. [Concomitant]
     Active Substance: TRIAMCINOLONE ACETONIDE
  6. DIAZEPAM. [Concomitant]
     Active Substance: DIAZEPAM
  7. TRAMADOL. [Concomitant]
     Active Substance: TRAMADOL
  8. BUTALBITAL, ACETAMINOPHEN, AND CAFFEINE [Concomitant]
     Active Substance: ACETAMINOPHEN\BUTALBITAL\CAFFEINE

REACTIONS (6)
  - Device dislocation [None]
  - Complication of device removal [None]
  - Uterine perforation [None]
  - Pain [None]
  - Injury [None]
  - Device breakage [None]

NARRATIVE: CASE EVENT DATE: 201305
